FAERS Safety Report 4362687-1 (Version None)
Quarter: 2004Q2

REPORT INFORMATION
  Report Type: 
  Country: None (occurrence: None)
  Receive Date: 20040517
  Receipt Date: 20040317
  Transmission Date: 20050107
  Serious: No
  Sender: FDA-Public Use
  Company Number: S04-USA-01989-01

PATIENT
  Age: 79 Year
  Sex: Female

DRUGS (7)
  1. NAMENDA [Suspect]
     Indication: DEMENTIA ALZHEIMER'S TYPE
     Dates: start: 20040201
  2. AUGMENTIN [Concomitant]
  3. PREVACID [Concomitant]
  4. XANAX [Concomitant]
  5. URECHOLINE (BETHANECHOL CHLORIDE) [Concomitant]
  6. REMERON [Concomitant]
  7. SEROQUEL [Concomitant]

REACTIONS (2)
  - ABNORMAL FAECES [None]
  - HAEMATOCHEZIA [None]
